FAERS Safety Report 12874519 (Version 1)
Quarter: 2016Q4

REPORT INFORMATION
  Report Type: Spontaneous
  Country: US (occurrence: US)
  Receive Date: 20161021
  Receipt Date: 20161021
  Transmission Date: 20170207
  Serious: No
  Sender: FDA-Public Use
  Company Number: US-SHIRE-US201615408

PATIENT
  Sex: Female

DRUGS (1)
  1. VYVANSE [Suspect]
     Active Substance: LISDEXAMFETAMINE DIMESYLATE
     Indication: PRODUCT USED FOR UNKNOWN INDICATION
     Dosage: UNK, UNKNOWN
     Route: 048

REACTIONS (6)
  - Emotional disorder [Recovered/Resolved]
  - Headache [Recovered/Resolved]
  - Abdominal pain upper [Recovered/Resolved]
  - Heart rate increased [Recovered/Resolved]
  - Nervousness [Recovered/Resolved]
  - Nausea [Recovered/Resolved]
